FAERS Safety Report 9486259 (Version 3)
Quarter: 2013Q3

REPORT INFORMATION
  Report Type: Report from Study
  Country: BG (occurrence: BG)
  Receive Date: 20130829
  Receipt Date: 20130904
  Transmission Date: 20140515
  Serious: Yes (Hospitalization)
  Sender: FDA-Public Use
  Company Number: BG-ASTRAZENECA-2013SE58884

PATIENT
  Age: 27685 Day
  Sex: Male
  Weight: 64 kg

DRUGS (3)
  1. AZD6140 [Suspect]
     Indication: PERIPHERAL ARTERIAL OCCLUSIVE DISEASE
     Route: 048
     Dates: start: 20130610, end: 20130719
  2. AGAPURIN [Concomitant]
     Indication: PERIPHERAL ARTERIAL OCCLUSIVE DISEASE
     Route: 048
     Dates: start: 20120204
  3. DUSODRIL [Concomitant]
     Indication: PERIPHERAL ARTERIAL OCCLUSIVE DISEASE
     Route: 048
     Dates: start: 20120204

REACTIONS (1)
  - Bladder transitional cell carcinoma [Recovered/Resolved with Sequelae]
